FAERS Safety Report 23709013 (Version 2)
Quarter: 2024Q2

REPORT INFORMATION
  Report Type: Spontaneous
  Country: US (occurrence: US)
  Receive Date: 20240404
  Receipt Date: 20240412
  Transmission Date: 20240716
  Serious: No
  Sender: FDA-Public Use
  Company Number: US-PFIZER INC-PV202400044542

PATIENT
  Age: 83 Year
  Sex: Female
  Weight: 57.596 kg

DRUGS (2)
  1. IBRANCE [Suspect]
     Active Substance: PALBOCICLIB
     Indication: Breast cancer
     Dosage: 100 MG, CYCLIC (ONCE A DAY ON DAYS 1-21 OF A 28 DAY CYCLE)
     Route: 048
  2. FASLODEX [Concomitant]
     Active Substance: FULVESTRANT
     Indication: Breast cancer
     Dosage: UNK

REACTIONS (4)
  - Neoplasm progression [Unknown]
  - Pleural effusion [Unknown]
  - Pleuritic pain [Unknown]
  - Flank pain [Unknown]
